APPROVED DRUG PRODUCT: PROMETHAZINE HYDROCHLORIDE
Active Ingredient: PROMETHAZINE HYDROCHLORIDE
Strength: 12.5MG
Dosage Form/Route: TABLET;ORAL
Application: A040558 | Product #001
Applicant: ABLE LABORATORIES INC
Approved: Jul 1, 2004 | RLD: No | RS: No | Type: DISCN